FAERS Safety Report 24369373 (Version 1)
Quarter: 2024Q3

REPORT INFORMATION
  Report Type: Spontaneous
  Country: US (occurrence: US)
  Receive Date: 20240927
  Receipt Date: 20240927
  Transmission Date: 20241017
  Serious: No
  Sender: QILU PHARMACEUTICAL
  Company Number: US-QILU PHARMACEUTICAL (HAINAN) CO., LTD.-QLH-000161-2023

PATIENT
  Age: 46 Year
  Sex: Male

DRUGS (1)
  1. FOSAPREPITANT [Suspect]
     Active Substance: FOSAPREPITANT
     Indication: Chemotherapy side effect prophylaxis
     Dosage: 150 MG, ADMINISTERED ONCE
     Route: 042
     Dates: start: 20230905, end: 20230905

REACTIONS (5)
  - Feeling abnormal [Recovering/Resolving]
  - Nausea [Recovered/Resolved]
  - Sensory disturbance [Recovering/Resolving]
  - Musculoskeletal stiffness [Recovering/Resolving]
  - Flushing [Recovering/Resolving]

NARRATIVE: CASE EVENT DATE: 20230905
